FAERS Safety Report 8155529-X (Version None)
Quarter: 2012Q1

REPORT INFORMATION
  Report Type: 
  Country: None (occurrence: None)
  Receive Date: 20120222
  Receipt Date: 20120209
  Transmission Date: 20120608
  Serious: Yes (Hospitalization)
  Sender: FDA-Public Use
  Company Number: US-CELGENEUS-163-21880-12020338

PATIENT
  Sex: Female
  Weight: 73.8 kg

DRUGS (20)
  1. REVLIMID [Suspect]
     Dosage: 10 MILLIGRAM
     Route: 048
     Dates: end: 20120101
  2. COREG [Concomitant]
     Dosage: 40 MILLIGRAM
     Route: 065
     Dates: end: 20120101
  3. RENVELA [Concomitant]
     Dosage: 40 MILLIGRAM
     Route: 065
     Dates: end: 20120101
  4. PERCOCET [Concomitant]
     Route: 065
  5. ASPIRIN [Concomitant]
     Dosage: 40 MILLIGRAM
     Route: 065
     Dates: end: 20120101
  6. DEXAMETHASONE [Suspect]
     Dosage: 40 MILLIGRAM
     Route: 065
     Dates: end: 20120101
  7. PERCOCET [Concomitant]
     Dosage: 40 MILLIGRAM
     Route: 065
     Dates: end: 20120101
  8. SENSIPAR [Concomitant]
     Dosage: 40 MILLIGRAM
     Route: 065
     Dates: end: 20120101
  9. RENVELA [Concomitant]
     Route: 065
  10. ASPIRIN [Concomitant]
     Dosage: 81 MILLIGRAM
     Route: 065
  11. DEXAMETHASONE [Suspect]
     Indication: MULTIPLE MYELOMA
     Dosage: 40 MILLIGRAM
     Route: 065
     Dates: start: 20111124
  12. SENSIPAR [Concomitant]
     Route: 065
  13. CARDIZEM [Concomitant]
     Route: 065
  14. CARDIZEM [Concomitant]
     Dosage: 40 MILLIGRAM
     Route: 065
     Dates: end: 20120101
  15. LOSARTAN POTASSIUM [Concomitant]
     Route: 065
  16. VITAMIN D [Concomitant]
     Dosage: 40 MILLIGRAM
     Route: 065
     Dates: end: 20120101
  17. LOSARTAN POTASSIUM [Concomitant]
     Dosage: 40 MILLIGRAM
     Route: 065
     Dates: end: 20120101
  18. VITAMIN D [Concomitant]
     Route: 065
  19. REVLIMID [Suspect]
     Indication: MULTIPLE MYELOMA
     Dosage: 10 MILLIGRAM
     Route: 048
     Dates: start: 20111124
  20. COREG [Concomitant]
     Route: 065

REACTIONS (1)
  - GASTRIC ULCER PERFORATION [None]
